FAERS Safety Report 5141174-7 (Version None)
Quarter: 2006Q4

REPORT INFORMATION
  Report Type: 
  Country: None (occurrence: None)
  Receive Date: 20061026
  Receipt Date: 20061017
  Transmission Date: 20070319
  Serious: Yes (Hospitalization)
  Sender: FDA-Public Use
  Company Number: 231279

PATIENT
  Age: 76 Year
  Sex: Female
  Weight: 58 kg

DRUGS (7)
  1. MABTHERA (RITUXIMAB) CONC FOR SOLUTION FOR INFUSION [Suspect]
     Indication: DIFFUSE LARGE B-CELL LYMPHOMA
     Dosage: 589 MG, INTRAVENOUS
     Route: 042
     Dates: start: 20060729
  2. LENOGRASTIN [Concomitant]
  3. CO-TRIMOXAZOL FORTE (SULFAMETHOXAZOLE, TRIMETHOPRIM) [Concomitant]
  4. ACYCLOVIR SODIUM [Concomitant]
  5. ALLOPURINOL [Concomitant]
  6. BISOPROLOL FUMARATE [Concomitant]
  7. LEVOFLOXACIN [Concomitant]

REACTIONS (1)
  - PANCREATITIS [None]
